FAERS Safety Report 9772760 (Version 1)
Quarter: 2013Q4

REPORT INFORMATION
  Report Type: Spontaneous
  Country: US (occurrence: None)
  Receive Date: 20131218
  Receipt Date: 20131218
  Transmission Date: 20140711
  Serious: Yes (Hospitalization)
  Sender: FDA-Public Use
  Company Number: None

PATIENT
  Age: 34 Year
  Sex: Female
  Weight: 70.5 kg

DRUGS (20)
  1. CEFTAROLINE [Suspect]
     Indication: CYSTIC FIBROSIS
     Route: 042
     Dates: start: 20130902, end: 20130913
  2. CEFTAROLINE [Suspect]
     Indication: PNEUMONIA STAPHYLOCOCCAL
     Route: 042
     Dates: start: 20130902, end: 20130913
  3. ASCORBIC ACID [Concomitant]
  4. AZITHROMYCIN [Concomitant]
  5. BUDESONIDE NASAL SPRAY [Concomitant]
  6. CALCIUM CARBONATE [Concomitant]
  7. VITAMIN D3 [Concomitant]
  8. DORNASE ALFA [Concomitant]
  9. ADVAIR [Concomitant]
  10. LANTUS [Concomitant]
  11. LEVOTHYROXINE [Concomitant]
  12. MEROPENEM [Concomitant]
  13. MONTELUKAST [Concomitant]
  14. OMEGA-3 [Concomitant]
  15. PANCREALIPASE [Concomitant]
  16. PHYTONADIONE [Concomitant]
  17. SODIUM CHLORIDE [Concomitant]
  18. TOBRAMYCIN [Concomitant]
  19. URSODIOL [Concomitant]
  20. HEPARIN DRIP [Concomitant]

REACTIONS (3)
  - Chills [None]
  - Dyspnoea [None]
  - Drug reaction with eosinophilia and systemic symptoms [None]
